FAERS Safety Report 18137740 (Version 1)
Quarter: 2020Q3

REPORT INFORMATION
  Report Type: Spontaneous
  Country: CH (occurrence: CH)
  Receive Date: 20200811
  Receipt Date: 20200811
  Transmission Date: 20201103
  Serious: Yes (Death)
  Sender: FDA-Public Use
  Company Number: CH-BAXTER-2020BAX015819

PATIENT
  Age: 77 Year
  Sex: Male

DRUGS (21)
  1. ASPIRIN CARDIO [Concomitant]
     Active Substance: ASPIRIN
     Indication: DRUG THERAPY
     Route: 065
  2. TOREM [Concomitant]
     Active Substance: TORSEMIDE
     Indication: PRODUCT USED FOR UNKNOWN INDICATION
     Route: 065
  3. METOLAZON [Concomitant]
     Active Substance: METOLAZONE
     Indication: PRODUCT USED FOR UNKNOWN INDICATION
     Route: 065
  4. TRANSIPEG FORTE [Concomitant]
     Indication: ABNORMAL FAECES
     Route: 065
  5. ANTIDRY LOTION [Concomitant]
     Indication: PRURITUS
     Route: 065
  6. PANTOZOL [Concomitant]
     Active Substance: PANTOPRAZOLE SODIUM
     Indication: PROPHYLAXIS
     Route: 065
  7. RENVELA [Concomitant]
     Active Substance: SEVELAMER CARBONATE
     Indication: CALCINOSIS
     Route: 065
  8. BILAXTEN [Concomitant]
     Active Substance: BILASTINE
     Indication: PRURITUS
     Route: 065
  9. DAFALGAN [Concomitant]
     Active Substance: ACETAMINOPHEN
     Indication: PAIN
     Dosage: MAXIMUM. ALL 6 HOURS 1 PILL
     Route: 065
  10. VI?DE 3 [Concomitant]
     Active Substance: CHOLECALCIFEROL
     Indication: OSTEOPOROSIS
     Dosage: 4500 E/ML, ON 10TH OF THE MONTH 5 ML (1/2?FLASK)
     Route: 065
  11. EXTRANEAL [Suspect]
     Active Substance: CALCIUM CHLORIDE\ICODEXTRIN\MAGNESIUM CHLORIDE\SODIUM CHLORIDE\SODIUM LACTATE
     Indication: PERITONEAL DIALYSIS
     Dosage: 1 BAG
     Route: 033
     Dates: start: 202006
  12. MIRCERA [Concomitant]
     Active Substance: METHOXY POLYETHYLENE GLYCOL-EPOETIN BETA
     Indication: PRODUCT USED FOR UNKNOWN INDICATION
     Dosage: 50 MCG
     Route: 058
  13. TAMSUNAX [Concomitant]
     Indication: PROSTATIC DISORDER
     Route: 065
  14. NOVALGIN [Concomitant]
     Indication: PAIN
     Dosage: MAXIMUM. ALL 6 HOURS 20?40 DROPS
     Route: 065
  15. ATORVASTATIN [Concomitant]
     Active Substance: ATORVASTATIN
     Indication: BLOOD CHOLESTEROL INCREASED
     Route: 065
  16. FERINJECT [Concomitant]
     Active Substance: FERRIC CARBOXYMALTOSE
     Indication: SUPPLEMENTATION THERAPY
     Route: 065
  17. PRURI MED WATER [Concomitant]
     Indication: PRURITUS
     Route: 065
  18. VITARUBIN DEPOT [Concomitant]
     Indication: SUPPLEMENTATION THERAPY
     Dosage: NEXT JUL2020
     Route: 058
  19. ANORO ELLIPTA [Concomitant]
     Active Substance: UMECLIDINIUM BROMIDE\VILANTEROL TRIFENATATE
     Indication: PRODUCT USED FOR UNKNOWN INDICATION
     Dosage: INHALATION
     Route: 065
  20. MAGNESIUM DIASPORAL 300 [Concomitant]
     Indication: MUSCLE SPASMS
     Route: 065
  21. TRITTICO [Concomitant]
     Active Substance: TRAZODONE HYDROCHLORIDE
     Indication: AFFECTIVE DISORDER
     Route: 065

REACTIONS (1)
  - Death [Fatal]

NARRATIVE: CASE EVENT DATE: 20200722
